FAERS Safety Report 12591267 (Version 1)
Quarter: 2016Q3

REPORT INFORMATION
  Report Type: Spontaneous
  Country: US (occurrence: None)
  Receive Date: 20160725
  Receipt Date: 20160725
  Transmission Date: 20161109
  Serious: No
  Sender: FDA-Public Use
  Company Number: None

PATIENT
  Age: 63 Year
  Sex: Female
  Weight: 90.72 kg

DRUGS (7)
  1. MULTIVITAMIN [Concomitant]
     Active Substance: VITAMINS
  2. LOSARTIN [Concomitant]
     Active Substance: LOSARTAN
  3. BACLOFEN. [Suspect]
     Active Substance: BACLOFEN
     Indication: MUSCLE SPASTICITY
     Dosage: 1 Q8HOURS
     Route: 048
     Dates: start: 20160606, end: 20160608
  4. NEZERONTIN [Concomitant]
  5. LEVOTHYROXINE. [Concomitant]
     Active Substance: LEVOTHYROXINE
  6. ATENOLOL. [Concomitant]
     Active Substance: ATENOLOL
  7. ELMIRON [Concomitant]
     Active Substance: PENTOSAN POLYSULFATE SODIUM

REACTIONS (2)
  - Dizziness [None]
  - Shock symptom [None]

NARRATIVE: CASE EVENT DATE: 20160606
